FAERS Safety Report 4492180-7 (Version None)
Quarter: 2004Q4

REPORT INFORMATION
  Report Type: 
  Country: None (occurrence: None)
  Receive Date: 20041101
  Receipt Date: 20041015
  Transmission Date: 20050328
  Serious: Yes (Death)
  Sender: FDA-Public Use
  Company Number: 8005731

PATIENT
  Age: 68 Year
  Sex: Male

DRUGS (12)
  1. KEPPRA [Suspect]
     Indication: HYPOAESTHESIA
     Dosage: 250 MG 2/D PO
     Route: 048
     Dates: end: 20040120
  2. DEMEROL [Suspect]
     Dosage: 50 MG ONCE IV
     Route: 042
     Dates: start: 20040117, end: 20040120
  3. ACCUPRIL [Concomitant]
  4. ACTUSS LINCTUS [Concomitant]
  5. ASPIRIN [Concomitant]
  6. CLARINEX [Concomitant]
  7. FLEMEX [Concomitant]
  8. HYDROCHLOROTHIAZIDE [Concomitant]
  9. PLAVIX [Concomitant]
  10. REGLAN [Concomitant]
  11. NEURONTIN [Concomitant]
  12. TOPROL-XL [Concomitant]

REACTIONS (11)
  - ABDOMINAL PAIN UPPER [None]
  - ACUTE MYOCARDIAL INFARCTION [None]
  - ANOXIC ENCEPHALOPATHY [None]
  - COMA [None]
  - CYANOSIS [None]
  - DRUG INTERACTION [None]
  - POST PROCEDURAL PAIN [None]
  - PULSE ABSENT [None]
  - RESPIRATORY ARREST [None]
  - RESPIRATORY FAILURE [None]
  - URINARY RETENTION [None]
